FAERS Safety Report 18456878 (Version 4)
Quarter: 2021Q1

REPORT INFORMATION
  Report Type: Report from Study
  Country: GB (occurrence: GB)
  Receive Date: 20201103
  Receipt Date: 20210326
  Transmission Date: 20210419
  Serious: Yes (Life-Threatening, Other)
  Sender: FDA-Public Use
  Company Number: NVSC2020GB293442

PATIENT
  Sex: Male

DRUGS (1)
  1. ERELZI [Suspect]
     Active Substance: ETANERCEPT-SZZS
     Indication: ANKYLOSING SPONDYLITIS
     Dosage: 50 MG, QW
     Route: 058

REACTIONS (8)
  - Depression [Unknown]
  - Hypokinesia [Unknown]
  - Affective disorder [Unknown]
  - Injury [Unknown]
  - Exercise tolerance decreased [Unknown]
  - Suicidal ideation [Unknown]
  - Rectal haemorrhage [Unknown]
  - Neck pain [Not Recovered/Not Resolved]
